FAERS Safety Report 4554591-0 (Version None)
Quarter: 2005Q1

REPORT INFORMATION
  Report Type: 
  Country: None (occurrence: None)
  Receive Date: 20050118
  Receipt Date: 20030605
  Transmission Date: 20050727
  Serious: Yes (Hospitalization, Disabling, Other)
  Sender: FDA-Public Use
  Company Number: US-MERCK-0306USA00925

PATIENT
  Age: 62 Year
  Sex: Female

DRUGS (8)
  1. VIOXX [Suspect]
     Indication: SPONDYLITIS
     Route: 048
     Dates: start: 20010101, end: 20010601
  2. VIOXX [Suspect]
     Route: 048
     Dates: end: 20010412
  3. COZAAR [Concomitant]
     Route: 048
  4. CARDIZEM [Concomitant]
     Route: 065
  5. DARVOCET-N 100 [Concomitant]
     Route: 065
     Dates: end: 20010503
  6. ECOTRIN [Concomitant]
     Route: 048
     Dates: end: 20010601
  7. ECOTRIN [Concomitant]
     Route: 048
     Dates: start: 20010624
  8. PREMARIN [Concomitant]
     Route: 048

REACTIONS (38)
  - ABDOMINAL ADHESIONS [None]
  - ADVERSE EVENT [None]
  - ANGINA PECTORIS [None]
  - ANXIETY [None]
  - BLOOD CHOLESTEROL INCREASED [None]
  - CAROTID ARTERIAL EMBOLUS [None]
  - CAROTID ARTERY DISEASE [None]
  - CAROTID ARTERY STENOSIS [None]
  - CHRONIC OBSTRUCTIVE PULMONARY DISEASE [None]
  - CONVULSION [None]
  - CORONARY ARTERY DISEASE [None]
  - DIVERTICULUM INTESTINAL [None]
  - DIZZINESS [None]
  - DUODENAL ULCER HAEMORRHAGE [None]
  - DYSPHAGIA [None]
  - DYSPNOEA [None]
  - ESSENTIAL HYPERTENSION [None]
  - GASTROINTESTINAL CANDIDIASIS [None]
  - GASTROINTESTINAL HAEMORRHAGE [None]
  - HEADACHE [None]
  - HIATUS HERNIA [None]
  - HYPERTENSION [None]
  - HYPOCHROMIC ANAEMIA [None]
  - MONARTHRITIS [None]
  - MYOCARDIAL ISCHAEMIA [None]
  - NECK MASS [None]
  - ORAL CANDIDIASIS [None]
  - PALPITATIONS [None]
  - PELVIC PERITONEAL ADHESIONS [None]
  - PEPTIC ULCER [None]
  - PERIPHERAL VASCULAR DISORDER [None]
  - PHARYNGOLARYNGEAL PAIN [None]
  - PRURITUS GENERALISED [None]
  - PULMONARY HYPERTENSION [None]
  - RASH PRURITIC [None]
  - SUBCUTANEOUS HAEMATOMA [None]
  - TRANSIENT ISCHAEMIC ATTACK [None]
  - VERTEBRAL ARTERY STENOSIS [None]
